FAERS Safety Report 4865518-6 (Version None)
Quarter: 2005Q4

REPORT INFORMATION
  Report Type: 
  Country: None (occurrence: None)
  Receive Date: 20051223
  Receipt Date: 20010105
  Transmission Date: 20060501
  Serious: Yes (Hospitalization)
  Sender: FDA-Public Use
  Company Number: US-ROCHE-252203

PATIENT
  Age: 50 Year
  Sex: Male
  Weight: 79.1 kg

DRUGS (13)
  1. DACLIZUMAB [Suspect]
     Dosage: FIVE DOSES WERE GIVEN IN TOTAL.
     Route: 042
     Dates: start: 20000719
  2. MYCOPHENOLATE MOFETIL [Suspect]
     Route: 048
     Dates: start: 20000720
  3. CYCLOSPORINE [Suspect]
     Route: 048
     Dates: start: 20000906
  4. PREDNISONE 50MG TAB [Suspect]
     Route: 048
     Dates: start: 20001215
  5. PRAVACHOL [Concomitant]
     Dates: start: 20000731
  6. MAG PLUS [Concomitant]
     Dates: start: 20000720
  7. ZANTAC [Concomitant]
     Dates: start: 20000724
  8. CACO3 [Concomitant]
     Dates: start: 20000814
  9. BACTRIM [Concomitant]
     Dates: start: 20000719
  10. ASPIRIN [Concomitant]
     Dates: start: 20000720
  11. FOSAMAX [Concomitant]
     Dates: start: 20000814
  12. LASIX [Concomitant]
     Dates: start: 20000824
  13. CARDIZEM CD [Concomitant]
     Dates: start: 20000905

REACTIONS (3)
  - MYOCARDIAL ISCHAEMIA [None]
  - SINUS TACHYCARDIA [None]
  - UPPER RESPIRATORY TRACT INFECTION [None]
